FAERS Safety Report 4474960-7 (Version None)
Quarter: 2004Q3

REPORT INFORMATION
  Report Type: 
  Country: None (occurrence: None)
  Receive Date: 20040923
  Receipt Date: 20040805
  Transmission Date: 20050211
  Serious: Yes (Hospitalization)
  Sender: FDA-Public Use
  Company Number: USA040671479

PATIENT
  Age: 73 Year
  Sex: Female
  Weight: 67 kg

DRUGS (9)
  1. EVISTA [Suspect]
     Indication: OSTEOPOROSIS
     Dates: start: 19990101
  2. FORTEO [Suspect]
     Indication: OSTEOPOROSIS
     Dosage: 20 UG/1 DAY
     Dates: start: 20040625, end: 20040629
  3. CALCIUM [Concomitant]
  4. VITAMIN D [Concomitant]
  5. XANAX (ALPRAZOLAM DUM) [Concomitant]
  6. FOSAMAX [Concomitant]
  7. ACTONEL [Concomitant]
  8. MIACALCIN [Concomitant]
  9. MULTIVITAMIN [Concomitant]

REACTIONS (8)
  - BLOOD PRESSURE INCREASED [None]
  - DIZZINESS [None]
  - DYSPNOEA [None]
  - NAUSEA [None]
  - POSTURE ABNORMAL [None]
  - SOMNOLENCE [None]
  - SPINAL COMPRESSION FRACTURE [None]
  - WALKING AID USER [None]
